FAERS Safety Report 7154432-1 (Version None)
Quarter: 2010Q4

REPORT INFORMATION
  Report Type: 
  Country: None (occurrence: None)
  Receive Date: 20101213
  Receipt Date: 20101206
  Transmission Date: 20110411
  Serious: Yes (Other)
  Sender: FDA-Public Use
  Company Number: US-GENENTECH-297052

PATIENT
  Sex: Female
  Weight: 88.889 kg

DRUGS (36)
  1. XOLAIR [Suspect]
     Indication: ASTHMA
     Dosage: 300 MG, Q4W
     Route: 058
     Dates: start: 20060922, end: 20100112
  2. EPIPEN [Concomitant]
     Indication: ANAPHYLACTIC REACTION
     Dosage: 0.3 MG, UNK
  3. SODIUM CHLORIDE 0.9% [Concomitant]
     Indication: HYPERSENSITIVITY
     Dosage: UNK
  4. NASACORT AQ [Concomitant]
     Indication: RHINITIS ALLERGIC
     Dosage: 2 PUFF, BID
     Route: 055
     Dates: start: 20090101
  5. PATANASE NASAL SPRAY [Concomitant]
     Indication: PRODUCT USED FOR UNKNOWN INDICATION
     Dosage: 2 PUFF, BID
  6. XOPENEX HFA [Concomitant]
     Indication: ASTHMA
     Dosage: 2 UNK, PRN
     Route: 055
     Dates: start: 20090101
  7. XOPHENEX [Concomitant]
     Indication: ASTHMA
     Dosage: 1.25 MG, PRN
     Route: 055
     Dates: start: 20080101
  8. ALVESCO [Concomitant]
     Indication: ASTHMA
     Dosage: 160 A?G, QD
     Route: 055
     Dates: start: 20080101
  9. PREDNISONE [Concomitant]
     Indication: PRODUCT USED FOR UNKNOWN INDICATION
     Dosage: UNK
  10. NEXIUM [Concomitant]
     Indication: GASTROOESOPHAGEAL REFLUX DISEASE
     Dosage: 40 MG, BID
     Route: 048
     Dates: start: 20080101
  11. AFRIN [Concomitant]
     Indication: PRODUCT USED FOR UNKNOWN INDICATION
     Dosage: UNK
  12. BACTROBAN NASAL [Concomitant]
     Indication: PRODUCT USED FOR UNKNOWN INDICATION
     Dosage: UNK
  13. LORATADINE [Concomitant]
     Indication: HYPERSENSITIVITY
     Dosage: 10 MG, QD
     Route: 048
  14. REGLAN [Concomitant]
     Indication: GASTROOESOPHAGEAL REFLUX DISEASE
     Dosage: 10 MG, QHS
     Route: 048
     Dates: start: 20060101
  15. SINGULAIR [Concomitant]
     Indication: HYPERSENSITIVITY
     Dosage: 10 MG, QD
     Route: 048
     Dates: start: 20050101
  16. SINGULAIR [Concomitant]
     Indication: ASTHMA
  17. SPIRIVA [Concomitant]
     Indication: ASTHMA
     Dosage: 1 UNK, QD
     Route: 055
     Dates: start: 20040101
  18. TOBRAMYCIN [Concomitant]
     Indication: SINUSITIS
     Dosage: UNK
     Route: 055
     Dates: start: 20090101
  19. VANCOMYCIN [Concomitant]
     Indication: SINUSITIS
     Dosage: UNK
     Route: 055
     Dates: start: 20090101
  20. MUCINEX [Concomitant]
     Indication: NASOPHARYNGITIS
     Dosage: UNK
     Route: 048
  21. AMITRIPTYLINE [Concomitant]
     Indication: HYPERSENSITIVITY
     Dosage: 10 MG, QHS
     Route: 048
     Dates: start: 20050101
  22. XYLOCAINE [Concomitant]
     Indication: PRODUCT USED FOR UNKNOWN INDICATION
     Dosage: 40 MG/ML, PRN
  23. PATADAY [Concomitant]
     Indication: HYPERSENSITIVITY
     Dosage: UNK GTT, PRN
     Dates: start: 20070101
  24. LORAZEPAM [Concomitant]
     Indication: ANXIETY
     Dosage: 0.5 MG, PRN
     Route: 048
  25. TYLENOL (CAPLET) [Concomitant]
     Indication: PAIN
     Dosage: 500 MG, PRN
     Route: 048
  26. TYLENOL (CAPLET) [Concomitant]
     Indication: HEADACHE
  27. OYSTER SHELL CALCIUM [Concomitant]
     Indication: PRODUCT USED FOR UNKNOWN INDICATION
     Dosage: 500 MG, QD
     Route: 048
  28. IBUPROFEN [Concomitant]
     Indication: PAIN
     Dosage: 800 MG, PRN
     Route: 048
  29. IMITREX [Concomitant]
     Indication: MIGRAINE
     Dosage: 100 MG, PRN
     Route: 048
  30. VICODIN [Concomitant]
     Indication: PRODUCT USED FOR UNKNOWN INDICATION
     Dosage: UNK MG, UNK
  31. TRIAMCINOLON OINTMENT [Concomitant]
     Indication: PRODUCT USED FOR UNKNOWN INDICATION
     Dosage: 0.5 %, PRN
  32. ZEGERID [Concomitant]
     Indication: GASTROOESOPHAGEAL REFLUX DISEASE
     Dosage: 40 MG, QHS
     Route: 048
     Dates: start: 20080101
  33. HI-CAL PLUS VITAMIN D [Concomitant]
     Indication: VITAMIN D DEFICIENCY
     Dosage: 1 TABLET, QD
     Route: 048
  34. ZOLOFT [Concomitant]
     Indication: DEPRESSION
     Dosage: 100 MG, QD
     Route: 048
     Dates: start: 20071027
  35. AZITHROMYCIN [Concomitant]
     Indication: SINUSITIS
     Dosage: 500 MG, QD
     Route: 048
     Dates: start: 20101005, end: 20101011
  36. IMMUNOTHERAPY (CAT HAIR, DUSTMITE MIX, AND MO [Concomitant]
     Indication: HYPERSENSITIVITY

REACTIONS (4)
  - ABDOMINAL PAIN [None]
  - ASTHMA [None]
  - COUGH [None]
  - HYPERSENSITIVITY [None]
